FAERS Safety Report 11338177 (Version 2)
Quarter: 2015Q3

REPORT INFORMATION
  Report Type: Spontaneous
  Country: US (occurrence: US)
  Receive Date: 20150803
  Receipt Date: 20150803
  Transmission Date: 20151125
  Serious: No
  Sender: FDA-Public Use
  Company Number: US-ELI_LILLY_AND_COMPANY-US201007004186

PATIENT
  Age: 34 Year
  Sex: Female

DRUGS (6)
  1. BENZTROPINE [Concomitant]
     Active Substance: BENZTROPINE
  2. ZYPREXA [Suspect]
     Active Substance: OLANZAPINE
     Dosage: 30 MG, DAILY (1/D)
  3. XANAX [Concomitant]
     Active Substance: ALPRAZOLAM
  4. SUBOXONE [Concomitant]
     Active Substance: BUPRENORPHINE HYDROCHLORIDE\NALOXONE HYDROCHLORIDE
  5. STRATTERA [Suspect]
     Active Substance: ATOMOXETINE HYDROCHLORIDE
  6. LITHIUM. [Concomitant]
     Active Substance: LITHIUM

REACTIONS (3)
  - Anxiety [Unknown]
  - Prescribed overdose [Recovered/Resolved]
  - Akathisia [Unknown]
